FAERS Safety Report 6895083-3 (Version None)
Quarter: 2010Q3

REPORT INFORMATION
  Report Type: 
  Country: None (occurrence: None)
  Receive Date: 20100708
  Receipt Date: 20090814
  Transmission Date: 20110219
  Serious: Yes (Other)
  Sender: FDA-Public Use
  Company Number: 2009260182

PATIENT
  Age: 44 Year
  Sex: Male
  Weight: 94.3 kg

DRUGS (1)
  1. CHANTIX [Suspect]
     Indication: TOBACCO ABUSE
     Dosage: 0.5 MG, 2X/DAY, ORAL
     Route: 048
     Dates: start: 20081001, end: 20081015

REACTIONS (3)
  - ABNORMAL DREAMS [None]
  - CONFUSIONAL STATE [None]
  - SUICIDAL IDEATION [None]
